FAERS Safety Report 16367230 (Version 1)
Quarter: 2019Q2

REPORT INFORMATION
  Report Type: Spontaneous
  Country: US (occurrence: US)
  Receive Date: 20190529
  Receipt Date: 20190529
  Transmission Date: 20190711
  Serious: No
  Sender: FDA-Public Use
  Company Number: US-ASTRAZENECA-2019SE76267

PATIENT
  Sex: Female
  Weight: 102.1 kg

DRUGS (9)
  1. LISINOPRIL. [Suspect]
     Active Substance: LISINOPRIL
     Indication: BLOOD PRESSURE MEASUREMENT
     Route: 048
  2. NEXIUM [Suspect]
     Active Substance: ESOMEPRAZOLE MAGNESIUM
     Indication: GASTROOESOPHAGEAL REFLUX DISEASE
     Route: 048
  3. NEXIUM [Suspect]
     Active Substance: ESOMEPRAZOLE MAGNESIUM
     Indication: GASTROOESOPHAGEAL REFLUX DISEASE
     Dosage: ESOMEPRAZOLE MAGNESIUM40.0MG UNKNOWN
     Route: 048
  4. ATENOLOL. [Suspect]
     Active Substance: ATENOLOL
     Indication: SYSTOLIC DYSFUNCTION
     Dosage: 25.0MG UNKNOWN
     Route: 048
  5. TOPROL XL [Suspect]
     Active Substance: METOPROLOL SUCCINATE
     Indication: BLOOD PRESSURE MEASUREMENT
     Route: 048
  6. XANAX [Concomitant]
     Active Substance: ALPRAZOLAM
  7. TRAZODONE [Concomitant]
     Active Substance: TRAZODONE HYDROCHLORIDE
  8. NEXIUM [Suspect]
     Active Substance: ESOMEPRAZOLE MAGNESIUM
     Indication: BARTTER^S SYNDROME
     Route: 048
  9. NEXIUM [Suspect]
     Active Substance: ESOMEPRAZOLE MAGNESIUM
     Indication: BARTTER^S SYNDROME
     Dosage: ESOMEPRAZOLE MAGNESIUM40.0MG UNKNOWN
     Route: 048

REACTIONS (12)
  - Extrasystoles [Unknown]
  - Urticaria [Unknown]
  - Intentional product misuse [Unknown]
  - Sensation of foreign body [Unknown]
  - Cough [Unknown]
  - Hypertension [Unknown]
  - Nasopharyngitis [Unknown]
  - Bronchitis [Unknown]
  - Hot flush [Unknown]
  - Blood pressure fluctuation [Unknown]
  - Anxiety [Unknown]
  - Device issue [Unknown]
